FAERS Safety Report 24404892 (Version 1)
Quarter: 2024Q4

REPORT INFORMATION
  Report Type: Report from Study
  Country: US (occurrence: US)
  Receive Date: 20241007
  Receipt Date: 20241007
  Transmission Date: 20250114
  Serious: Yes (Hospitalization, Other)
  Sender: PFIZER
  Company Number: US-PFIZER INC-PV202400128431

PATIENT
  Age: 66 Year
  Sex: Female

DRUGS (2)
  1. BUPRENORPHINE [Suspect]
     Active Substance: BUPRENORPHINE
     Indication: Pain
     Dosage: UNK
     Dates: start: 20240621
  2. DUPIXENT [Suspect]
     Active Substance: DUPILUMAB
     Indication: Dermatitis atopic
     Dosage: 300 MG QOW (EVERY OTHER WEEKS)
     Route: 058
     Dates: start: 20230621

REACTIONS (6)
  - Respiratory distress [Unknown]
  - Hypoxia [Unknown]
  - Carbon dioxide increased [Unknown]
  - Illness [Unknown]
  - Pain in extremity [Unknown]
  - Respiration abnormal [Unknown]

NARRATIVE: CASE EVENT DATE: 20240621
